FAERS Safety Report 23781286 (Version 1)
Quarter: 2024Q2

REPORT INFORMATION
  Report Type: Other
  Country: SY (occurrence: SY)
  Receive Date: 20240425
  Receipt Date: 20240425
  Transmission Date: 20240716
  Serious: Yes (Other)
  Sender: FDA-Public Use
  Company Number: SY-DEXPHARM-2024-1092

PATIENT
  Age: 50 Year
  Sex: Male

DRUGS (1)
  1. DICLOFENAC [Suspect]
     Active Substance: DICLOFENAC
     Dosage: 6 TIMES A DAY

REACTIONS (1)
  - Aphthous ulcer [Recovered/Resolved]
